FAERS Safety Report 6897449-4 (Version None)
Quarter: 2010Q3

REPORT INFORMATION
  Report Type: 
  Country: None (occurrence: None)
  Receive Date: 20100802
  Receipt Date: 20070524
  Transmission Date: 20110219
  Serious: No
  Sender: FDA-Public Use
  Company Number: US-PFIZER INC-2007044264

PATIENT
  Sex: Female
  Weight: 78.9 kg

DRUGS (7)
  1. LYRICA [Suspect]
     Indication: DIABETIC NEUROPATHY
     Dates: start: 20070501
  2. LYRICA [Suspect]
     Indication: FIBROMYALGIA
  3. NEXIUM [Concomitant]
     Indication: GASTROOESOPHAGEAL REFLUX DISEASE
  4. LEVSIN [Concomitant]
     Indication: ABDOMINAL PAIN UPPER
  5. AMITRIPTYLINE HYDROCHLORIDE [Concomitant]
  6. TOPROL-XL [Concomitant]
     Indication: HYPERTENSION
  7. LEXAPRO [Concomitant]
     Indication: PAIN

REACTIONS (1)
  - RASH [None]
